FAERS Safety Report 5213959-X (Version None)
Quarter: 2007Q1

REPORT INFORMATION
  Report Type: 
  Country: None (occurrence: None)
  Receive Date: 20070122
  Receipt Date: 20070109
  Transmission Date: 20070707
  Serious: Yes (Other)
  Sender: FDA-Public Use
  Company Number: PHBS2007BR00889

PATIENT
  Age: 98 Year
  Sex: Female
  Weight: 70 kg

DRUGS (4)
  1. TRILEPTAL [Suspect]
     Indication: TRANSIENT ISCHAEMIC ATTACK
     Dosage: 1 DF, TID
     Route: 048
  2. TRILEPTAL [Suspect]
     Dosage: 1 DF, BID
     Route: 048
  3. TRILEPTAL [Suspect]
     Dosage: 2.5 DF/DAT
     Route: 048
  4. GINKGO BILOBA [Concomitant]
     Route: 048

REACTIONS (4)
  - APATHY [None]
  - EPILEPSY [None]
  - SOMNOLENCE [None]
  - SPEECH DISORDER [None]
